FAERS Safety Report 11029371 (Version 1)
Quarter: 2015Q2

REPORT INFORMATION
  Report Type: Spontaneous
  Country: CN (occurrence: CN)
  Receive Date: 20150415
  Receipt Date: 20150415
  Transmission Date: 20150821
  Serious: Yes (Other)
  Sender: FDA-Public Use
  Company Number: CN-CIPLA LTD.-2015CN03111

PATIENT

DRUGS (2)
  1. GEMCITABINE [Suspect]
     Active Substance: GEMCITABINE\GEMCITABINE HYDROCHLORIDE
     Indication: BREAST CANCER METASTATIC
     Dosage: 1250 MG/M? ON DAYS 1 AND 8, EVERY 3 WEEKS FOR A MAXIMUM OF EIGHT CYCLES.
     Route: 042
  2. CISPLATIN. [Suspect]
     Active Substance: CISPLATIN
     Indication: BREAST CANCER METASTATIC
     Dosage: 75 MG/M? ON DAY 1, EVERY 3 WEEKS FOR A MAXIMUM OF EIGHT CYCLES.
     Route: 042

REACTIONS (1)
  - Hypophosphataemia [Unknown]
